FAERS Safety Report 13405093 (Version 1)
Quarter: 2017Q2

REPORT INFORMATION
  Report Type: Spontaneous
  Country: US (occurrence: US)
  Receive Date: 20170405
  Receipt Date: 20170405
  Transmission Date: 20170830
  Serious: No
  Sender: FDA-Public Use
  Company Number: US-TEVA-749981ACC

PATIENT
  Age: 69 Year
  Sex: Female

DRUGS (2)
  1. NUVIGIL [Suspect]
     Active Substance: ARMODAFINIL
     Indication: SLEEP DISORDER
  2. NUVIGIL [Suspect]
     Active Substance: ARMODAFINIL
     Indication: CRANIOCEREBRAL INJURY
     Dosage: 250 MILLIGRAM DAILY;
     Route: 048
     Dates: start: 201606, end: 201702

REACTIONS (6)
  - Abdominal distension [Recovered/Resolved]
  - Dysphagia [Unknown]
  - Headache [Unknown]
  - Drug ineffective [Unknown]
  - Lethargy [Unknown]
  - Disturbance in attention [Unknown]
